FAERS Safety Report 7267264-0 (Version None)
Quarter: 2011Q1

REPORT INFORMATION
  Report Type: 
  Country: None (occurrence: None)
  Receive Date: 20110201
  Receipt Date: 20110121
  Transmission Date: 20110831
  Serious: Yes (Other)
  Sender: FDA-Public Use
  Company Number: DE-MPIJNJ-2011-00315

PATIENT

DRUGS (9)
  1. VELCADE [Suspect]
     Indication: MULTIPLE MYELOMA
     Dosage: 1.7 MG, UNK
     Route: 065
     Dates: start: 20100201, end: 20100701
  2. MELPHALAN [Suspect]
     Indication: MULTIPLE MYELOMA
     Dosage: 9 MG, UNK
     Route: 065
     Dates: start: 20100201, end: 20100701
  3. BACTRIM [Suspect]
     Indication: PROPHYLAXIS
     Dosage: 2 DF, UNK
     Route: 065
  4. DEXAMETHASONE [Suspect]
     Indication: MULTIPLE MYELOMA
     Dosage: 20 MG, UNK
     Route: 065
     Dates: start: 20100201, end: 20100701
  5. ACICLOVIR [Concomitant]
     Indication: PROPHYLAXIS
     Dosage: 1600 MG, UNK
  6. ASA [Concomitant]
     Indication: THROMBOSIS PROPHYLAXIS
     Dosage: 100 MG, UNK
  7. TEMAZEPAM [Concomitant]
     Indication: INSOMNIA
     Dosage: 20 MG, UNK
  8. REVLIMID [Suspect]
     Indication: MULTIPLE MYELOMA
     Dosage: 15 MG, UNK
     Route: 048
     Dates: start: 20100201, end: 20100701
  9. CONCOR [Concomitant]
     Indication: HYPERTENSION
     Dosage: 5 MG, UNK

REACTIONS (3)
  - NEUTROPENIA [None]
  - DRUG INEFFECTIVE [None]
  - MULTIPLE MYELOMA [None]
